FAERS Safety Report 25314054 (Version 1)
Quarter: 2025Q2

REPORT INFORMATION
  Report Type: Spontaneous
  Country: US (occurrence: US)
  Receive Date: 20250514
  Receipt Date: 20250514
  Transmission Date: 20250716
  Serious: Yes (Hospitalization, Other)
  Sender: NOVO NORDISK
  Company Number: US-NOVOPROD-1053988

PATIENT
  Age: 51 Year
  Sex: Female

DRUGS (2)
  1. WEGOVY [Suspect]
     Active Substance: SEMAGLUTIDE
     Indication: Product used for unknown indication
     Dates: start: 20230324
  2. WEGOVY [Suspect]
     Active Substance: SEMAGLUTIDE

REACTIONS (13)
  - Blindness [Unknown]
  - Palpitations [Unknown]
  - Syncope [Unknown]
  - Dyspnoea [Unknown]
  - Cold sweat [Unknown]
  - Panic attack [Unknown]
  - Tremor [Unknown]
  - Anxiety [Unknown]
  - Pollakiuria [Unknown]
  - Dry mouth [Unknown]
  - Eructation [Unknown]
  - Blood glucose decreased [Unknown]
  - Counterfeit product administered [Unknown]

NARRATIVE: CASE EVENT DATE: 20230324
